FAERS Safety Report 5999837-7 (Version None)
Quarter: 2008Q4

REPORT INFORMATION
  Report Type: 
  Country: None (occurrence: None)
  Receive Date: 20081215
  Receipt Date: 20080821
  Transmission Date: 20090506
  Serious: No
  Sender: FDA-Public Use
  Company Number: US-AMGEN-KDL303201

PATIENT
  Sex: Female

DRUGS (2)
  1. ENBREL [Suspect]
     Indication: RHEUMATOID ARTHRITIS
     Dates: start: 20080701
  2. TRAZODONE HCL [Concomitant]

REACTIONS (2)
  - LIBIDO DECREASED [None]
  - ORGASMIC SENSATION DECREASED [None]
